FAERS Safety Report 14027636 (Version 1)
Quarter: 2017Q3

REPORT INFORMATION
  Report Type: Spontaneous
  Country: US (occurrence: US)
  Receive Date: 20170929
  Receipt Date: 20170929
  Transmission Date: 20171128
  Serious: No
  Sender: FDA-Public Use
  Company Number: US-PFIZER INC-2016492125

PATIENT
  Age: 66 Year
  Sex: Female
  Weight: 80 kg

DRUGS (15)
  1. VITAMIN D3 [Concomitant]
     Active Substance: CHOLECALCIFEROL
     Indication: VITAMIN D DEFICIENCY
     Dosage: 5000 IU, 1X/DAY
     Route: 048
  2. FUROSEMIDE. [Concomitant]
     Active Substance: FUROSEMIDE
     Indication: END STAGE RENAL DISEASE
     Dosage: 40 MG, 2X/DAY (NOTE: TAKE SECOND DOSE OF FUROSEMIDE IF LEGS MORE SWOLLEN)
     Route: 048
  3. PRAVASTATIN. [Concomitant]
     Active Substance: PRAVASTATIN
     Indication: HYPERLIPIDAEMIA
     Dosage: 40 MG, 1X/DAY
     Route: 048
  4. ULORIC [Concomitant]
     Active Substance: FEBUXOSTAT
     Indication: HYPERURICAEMIA
     Dosage: 40 MG, 1X/DAY
     Route: 048
  5. ASPIR 81 [Concomitant]
     Dosage: 81 MG, 1X/DAY
     Route: 048
  6. SODIUM BICARBONATE. [Concomitant]
     Active Substance: SODIUM BICARBONATE
     Indication: ACIDOSIS
     Dosage: 650 MG, 2X/DAY
     Route: 048
  7. PROCARDIA XL [Suspect]
     Active Substance: NIFEDIPINE
     Dosage: 30 MG, 1X/DAY
  8. BACTRIM DS [Concomitant]
     Active Substance: SULFAMETHOXAZOLE\TRIMETHOPRIM
     Dosage: 1 DF, 1X/DAY (SULFAMETHOXAZOLE: 800MG; TRIMETHOPRIM: 150MG)
     Route: 048
     Dates: start: 20160927
  9. IRON [Concomitant]
     Active Substance: IRON
     Indication: ANAEMIA OF CHRONIC DISEASE
     Dosage: 65 MG, 1X/DAY
     Route: 048
  10. CARVEDILOL. [Concomitant]
     Active Substance: CARVEDILOL
     Indication: END STAGE RENAL DISEASE
     Dosage: 25 MG, 2X/DAY
     Route: 048
  11. MAGNEBIND 400 RX [Concomitant]
     Active Substance: CALCIUM CARBONATE\FOLIC ACID\MAGNESIUM CARBONATE
     Dosage: 2 DF, 3X/DAY
     Route: 048
  12. GLIMEPIRIDE. [Concomitant]
     Active Substance: GLIMEPIRIDE
     Indication: TYPE 2 DIABETES MELLITUS
     Dosage: 4 MG, 1X/DAY
     Route: 048
  13. LOSARTAN POTASSIUM. [Concomitant]
     Active Substance: LOSARTAN POTASSIUM
     Indication: END STAGE RENAL DISEASE
     Dosage: 50 MG, 2X/DAY
     Route: 048
  14. PROCARDIA XL [Suspect]
     Active Substance: NIFEDIPINE
     Indication: HYPERTENSION
     Dosage: 60 MG, 2X/DAY
     Route: 048
  15. MAGNEBIND 400 RX [Concomitant]
     Active Substance: CALCIUM CARBONATE\FOLIC ACID\MAGNESIUM CARBONATE
     Indication: HYPERPARATHYROIDISM
     Dosage: UNK

REACTIONS (1)
  - Product use issue [Unknown]
